FAERS Safety Report 7022150-6 (Version None)
Quarter: 2010Q3

REPORT INFORMATION
  Report Type: 
  Country: None (occurrence: None)
  Receive Date: 20100930
  Receipt Date: 20100916
  Transmission Date: 20110219
  Serious: Yes (Other)
  Sender: FDA-Public Use
  Company Number: PHHY2010US62053

PATIENT
  Sex: Female

DRUGS (11)
  1. TEGRETOL [Suspect]
     Indication: CONVULSION
  2. COREG [Suspect]
     Dosage: 20 MG
  3. ENALAPRIL MALEATE [Suspect]
  4. THORAZINE [Suspect]
  5. METFORMIN [Suspect]
  6. GLUCOTROL [Suspect]
     Dosage: 5 MG
  7. JANUVIA [Suspect]
  8. VYTORIN [Suspect]
  9. DARVOCET [Suspect]
  10. SUPPLEMENTS [Suspect]
  11. FOSAMAX [Suspect]

REACTIONS (13)
  - BLADDER DISORDER [None]
  - BLOOD GLUCOSE INCREASED [None]
  - BLOOD PRESSURE INCREASED [None]
  - BONE DISORDER [None]
  - DEMENTIA [None]
  - DIZZINESS [None]
  - FALL [None]
  - FEELING ABNORMAL [None]
  - INABILITY TO CRAWL [None]
  - MENTAL DISABILITY [None]
  - PHYSICAL DISABILITY [None]
  - VARICOSE VEIN [None]
  - WEIGHT INCREASED [None]
